FAERS Safety Report 6129948-7 (Version None)
Quarter: 2009Q1

REPORT INFORMATION
  Report Type: 
  Country: None (occurrence: None)
  Receive Date: 20090323
  Receipt Date: 20090323
  Transmission Date: 20090719
  Serious: No
  Sender: FDA-Public Use
  Company Number: None

PATIENT
  Age: 68 Year
  Sex: Male
  Weight: 84.8226 kg

DRUGS (1)
  1. HALFLYTELY [Suspect]
     Indication: COLONOSCOPY
     Dosage: 1 8 OZ GLASS 10 MINUTES PO 4 TO 5 HOURS
     Route: 048
     Dates: start: 20071029, end: 20071030

REACTIONS (5)
  - ABDOMINAL PAIN [None]
  - DIARRHOEA [None]
  - GASTRIC DISORDER [None]
  - MALAISE [None]
  - RETCHING [None]
